FAERS Safety Report 8772428 (Version 1)
Quarter: 2012Q4

REPORT INFORMATION
  Report Type: 
  Country: US (occurrence: US)
  Receive Date: 20120905
  Receipt Date: 20120905
  Transmission Date: 20130627
  Serious: No
  Sender: FDA-Public Use
  Company Number: US-B.I. PHARMACEUTICALS,INC./RIDGEFIELD-2012-BP-21160BP

PATIENT
  Age: 57 Year
  Sex: Male

DRUGS (6)
  1. PRADAXA [Suspect]
     Indication: ATRIAL FIBRILLATION
     Dosage: 300 mg
     Route: 048
     Dates: start: 201201
  2. ABILIFY [Concomitant]
     Indication: ANXIETY
     Dosage: 2 mg
     Route: 048
     Dates: start: 201201
  3. ABILIFY [Concomitant]
     Indication: DEPRESSION
  4. LOSARTAN [Concomitant]
     Indication: HYPERTENSION
     Dosage: 100 mg
     Route: 048
  5. MULTAQ [Concomitant]
     Indication: ATRIAL FIBRILLATION
     Dosage: 800 mg
     Route: 048
     Dates: start: 201201
  6. PRAVACHOL [Concomitant]
     Indication: BLOOD CHOLESTEROL INCREASED
     Dosage: 20 mg
     Route: 048

REACTIONS (2)
  - International normalised ratio increased [Not Recovered/Not Resolved]
  - Prothrombin time prolonged [Not Recovered/Not Resolved]
